FAERS Safety Report 6601340-8 (Version None)
Quarter: 2010Q1

REPORT INFORMATION
  Report Type: 
  Country: None (occurrence: None)
  Receive Date: 20100224
  Receipt Date: 20100224
  Transmission Date: 20100710
  Serious: Yes (Hospitalization)
  Sender: FDA-Public Use
  Company Number: None

PATIENT
  Age: 52 Year
  Sex: Female
  Weight: 55.7924 kg

DRUGS (9)
  1. CISPLATIN [Suspect]
     Indication: SMALL CELL LUNG CANCER EXTENSIVE STAGE
     Dosage: 60MG/M2,IV Q3WKS
     Route: 042
     Dates: start: 20100121
  2. ETOPOSIDE [Suspect]
     Indication: SMALL CELL LUNG CANCER EXTENSIVE STAGE
     Dosage: 120MG/M2, IV DAYS 1-3 Q3WK
     Route: 042
     Dates: start: 20100121, end: 20100123
  3. SORAFENIB [Suspect]
     Indication: SMALL CELL LUNG CANCER EXTENSIVE STAGE
     Dosage: 200MG PO BID
     Route: 048
     Dates: start: 20100121, end: 20100204
  4. FLUCONOZOLE [Concomitant]
  5. PERCOCET [Concomitant]
  6. POTASSIUM CHLORIDE [Concomitant]
  7. ALBUTEROL SULATE [Concomitant]
  8. COMPAZINE [Concomitant]
  9. PEPCID [Concomitant]

REACTIONS (2)
  - PNEUMONIA [None]
  - SMALL INTESTINAL HAEMORRHAGE [None]
